FAERS Safety Report 10031917 (Version 1)
Quarter: 2014Q1

REPORT INFORMATION
  Report Type: Spontaneous
  Country: FR (occurrence: FR)
  Receive Date: 20140324
  Receipt Date: 20140324
  Transmission Date: 20141002
  Serious: Yes (Hospitalization)
  Sender: FDA-Public Use
  Company Number: FR-009507513-1403FRA007231

PATIENT
  Age: 75 Year
  Sex: Male

DRUGS (3)
  1. CHIBRO-PROSCAR [Suspect]
     Dosage: 5 MG, QD
     Route: 048
     Dates: start: 20111011, end: 201206
  2. AVODART [Suspect]
     Dosage: 0.5 MG, QD
     Route: 048
     Dates: start: 20110525, end: 20111011
  3. OMEXEL [Suspect]
     Dosage: 0.4 MG, QD
     Route: 048
     Dates: start: 20110525

REACTIONS (1)
  - Invasive ductal breast carcinoma [Recovered/Resolved with Sequelae]
